FAERS Safety Report 8790036 (Version 4)
Quarter: 2013Q1

REPORT INFORMATION
  Report Type: Report from Study
  Country: JP (occurrence: JP)
  Receive Date: 20120917
  Receipt Date: 20130215
  Transmission Date: 20140127
  Serious: Yes (Other)
  Sender: FDA-Public Use
  Company Number: JP-VERTEX PHARMACEUTICAL INC.-AE-2012-009781

PATIENT
  Age: 39 Year
  Sex: Male

DRUGS (15)
  1. VX-950 (TELAPREVIR) [Suspect]
     Indication: CHRONIC HEPATITIS C
     Dosage: 2250 MG, QD
     Route: 048
     Dates: start: 20120313, end: 20120604
  2. RIBAVIRIN [Suspect]
     Indication: CHRONIC HEPATITIS C
     Dosage: 800 MG, QD
     Route: 048
     Dates: start: 20120313, end: 20120423
  3. RIBAVIRIN [Suspect]
     Dosage: 400 MG, QD
     Route: 048
     Dates: start: 20120424, end: 20120821
  4. PEGINTERFERON ALFA-2B [Suspect]
     Indication: CHRONIC HEPATITIS C
     Dosage: 1.5 ?G/KG, QW
     Route: 058
     Dates: start: 20120313, end: 20120828
  5. ADOAIR [Concomitant]
     Dosage: 500 ?G, QD
     Route: 055
     Dates: end: 20120511
  6. GASTER D [Concomitant]
     Dosage: 20 MG, QD
     Route: 048
     Dates: start: 20120313, end: 20120423
  7. GASTER D [Concomitant]
     Dosage: 40 MG, QD
     Route: 048
     Dates: start: 20120424, end: 20120821
  8. ONON [Concomitant]
     Dosage: 450 MG, QD
     Route: 048
     Dates: start: 20120410, end: 20120821
  9. ASTHPHYLLIN [Concomitant]
     Dosage: 3 DF, QD
     Route: 048
     Dates: start: 20120410, end: 20120709
  10. ASTHPHYLLIN [Concomitant]
     Dosage: 2 DF, QD
     Route: 048
     Dates: start: 20120710, end: 20120821
  11. MEDICON [Concomitant]
     Dosage: 90 MG, QD
     Route: 048
     Dates: start: 20120410, end: 20120709
  12. MEDICON [Concomitant]
     Dosage: 60 MG, QD
     Route: 048
     Dates: start: 20120710, end: 20120821
  13. ALOSITOL [Concomitant]
     Dosage: 200 MG, QD
     Route: 048
     Dates: end: 20120709
  14. ALOSITOL [Concomitant]
     Dosage: 100 MG, QD
     Route: 048
     Dates: start: 20120710, end: 20120821
  15. PRIMPERAN [Concomitant]
     Dosage: 15 MG, QD
     Route: 048
     Dates: start: 20120410, end: 20120709

REACTIONS (1)
  - White blood cell count decreased [Recovered/Resolved]
